FAERS Safety Report 8471315-5 (Version None)
Quarter: 2012Q2

REPORT INFORMATION
  Report Type: 
  Country: None (occurrence: None)
  Receive Date: 20120627
  Receipt Date: 20120618
  Transmission Date: 20120825
  Serious: Yes (Hospitalization, Other)
  Sender: FDA-Public Use
  Company Number: US-NOVOPROD-354301

PATIENT
  Age: 80 Year
  Sex: Female
  Weight: 113.38 kg

DRUGS (1)
  1. VICTOZA [Suspect]
     Indication: GLUCOSE TOLERANCE IMPAIRED
     Dosage: 1.2 MG, QD
     Route: 058
     Dates: start: 20110426, end: 20120501

REACTIONS (5)
  - DYSPNOEA [None]
  - NAUSEA [None]
  - ABDOMINAL PAIN [None]
  - CEREBROVASCULAR ACCIDENT [None]
  - INTRACRANIAL ANEURYSM [None]
